FAERS Safety Report 6297990-1 (Version None)
Quarter: 2009Q3

REPORT INFORMATION
  Report Type: 
  Country: None (occurrence: None)
  Receive Date: 20090805
  Receipt Date: 20090729
  Transmission Date: 20100115
  Serious: Yes (Hospitalization)
  Sender: FDA-Public Use
  Company Number: B0586264A

PATIENT
  Age: 27 Year
  Sex: Female

DRUGS (1)
  1. AUGMENTIN '125' [Suspect]
     Indication: LYMPHANGITIS
     Dosage: 1TAB TWICE PER DAY
     Route: 048
     Dates: start: 20090620, end: 20090701

REACTIONS (5)
  - ANGIOEDEMA [None]
  - DYSARTHRIA [None]
  - LIP OEDEMA [None]
  - TONGUE OEDEMA [None]
  - URTICARIA [None]
